FAERS Safety Report 9415105 (Version 1)
Quarter: 2013Q3

REPORT INFORMATION
  Report Type: Spontaneous
  Country: FR (occurrence: FR)
  Receive Date: 20130723
  Receipt Date: 20130723
  Transmission Date: 20140515
  Serious: Yes (Life-Threatening, Hospitalization, Other)
  Sender: FDA-Public Use
  Company Number: FR-WATSON-2013-12464

PATIENT
  Age: 65 Year
  Sex: Male

DRUGS (2)
  1. DISULFIRAM (UNKNOWN) [Suspect]
     Indication: SELF-MEDICATION
     Dosage: 500 MG, SINGLE
     Route: 048
  2. ETHANOL [Interacting]
     Indication: ALCOHOL ABUSE
     Dosage: UNK
     Route: 048

REACTIONS (7)
  - Alcohol intolerance [Recovered/Resolved]
  - Shock [Recovered/Resolved]
  - Cardiomyopathy [Recovered/Resolved]
  - Hypothermia [Recovered/Resolved]
  - Lactic acidosis [Recovered/Resolved]
  - Drug interaction [Recovered/Resolved]
  - Intentional drug misuse [Recovered/Resolved]
